FAERS Safety Report 12931002 (Version 2)
Quarter: 2016Q4

REPORT INFORMATION
  Report Type: Report from Study
  Country: US (occurrence: US)
  Receive Date: 20161110
  Receipt Date: 20161116
  Transmission Date: 20170207
  Serious: No
  Sender: FDA-Public Use
  Company Number: PHEH2016US029437

PATIENT
  Sex: Female

DRUGS (1)
  1. COSENTYX [Suspect]
     Active Substance: SECUKINUMAB
     Indication: PSORIASIS
     Dosage: UNK
     Route: 065

REACTIONS (4)
  - Skin irritation [Unknown]
  - Incorrect dose administered [Not Recovered/Not Resolved]
  - Device use error [Not Recovered/Not Resolved]
  - Psoriasis [Not Recovered/Not Resolved]
